FAERS Safety Report 13672894 (Version 3)
Quarter: 2017Q3

REPORT INFORMATION
  Report Type: Report from Study
  Country: NO (occurrence: NO)
  Receive Date: 20170621
  Receipt Date: 20170714
  Transmission Date: 20171127
  Serious: Yes (Life-Threatening, Other)
  Sender: FDA-Public Use
  Company Number: NO-CELGENEUS-NOR-2016104880

PATIENT
  Sex: Male

DRUGS (6)
  1. REVLIMID [Suspect]
     Active Substance: LENALIDOMIDE
     Indication: PRODUCT USED FOR UNKNOWN INDICATION
     Dosage: 15 MG
     Route: 048
     Dates: start: 20160905, end: 20160914
  2. DAUNORUBICIN [Suspect]
     Active Substance: DAUNORUBICIN
     Dosage: 28.8 MG
     Route: 065
     Dates: start: 20160905, end: 20160907
  3. DAUNORUBICIN [Suspect]
     Active Substance: DAUNORUBICIN
     Indication: PRODUCT USED FOR UNKNOWN INDICATION
     Dosage: 144 MG
     Route: 065
     Dates: start: 20161003, end: 20161007
  4. REVLIMID [Suspect]
     Active Substance: LENALIDOMIDE
     Dosage: 15 MG
     Route: 048
     Dates: start: 20161003, end: 20161010
  5. CYTARABINE. [Suspect]
     Active Substance: CYTARABINE
     Indication: PRODUCT USED FOR UNKNOWN INDICATION
     Dosage: 4800 MG
     Route: 065
     Dates: start: 20161003, end: 20161009
  6. CYTARABINE. [Suspect]
     Active Substance: CYTARABINE
     Dosage: 480 MG
     Route: 065
     Dates: start: 20160905, end: 20160911

REACTIONS (5)
  - Colitis [Recovered/Resolved]
  - Device related infection [Recovered/Resolved]
  - Colitis [Recovered/Resolved]
  - Pulmonary embolism [Recovered/Resolved]
  - Sepsis [Recovered/Resolved]

NARRATIVE: CASE EVENT DATE: 20160912
